FAERS Safety Report 7342832-6 (Version None)
Quarter: 2011Q1

REPORT INFORMATION
  Report Type: 
  Country: None (occurrence: None)
  Receive Date: 20110301
  Receipt Date: 20110214
  Transmission Date: 20110831
  Serious: Yes (Other)
  Sender: FDA-Public Use
  Company Number: 2011AP000232

PATIENT
  Age: 50 Year
  Sex: Male

DRUGS (4)
  1. THYROID TAB [Concomitant]
  2. KETOPROFEN [Concomitant]
  3. CITALOPRAM HYDROBROMIDE [Suspect]
     Indication: DEPRESSION
     Dosage: 2 TAB; QD PO
     Route: 048
     Dates: start: 20101107, end: 20110207
  4. QUETIAPINE FUMARATE [Concomitant]

REACTIONS (7)
  - ASTHENIA [None]
  - ABNORMAL SENSATION IN EYE [None]
  - EAR DISCOMFORT [None]
  - HEADACHE [None]
  - NAUSEA [None]
  - DRUG WITHDRAWAL SYNDROME [None]
  - DIARRHOEA [None]
